FAERS Safety Report 4860501-9 (Version None)
Quarter: 2005Q4

REPORT INFORMATION
  Report Type: 
  Country: None (occurrence: None)
  Receive Date: 20051219
  Receipt Date: 20051208
  Transmission Date: 20060501
  Serious: Yes (Hospitalization)
  Sender: FDA-Public Use
  Company Number: GB-AVENTIS-200520884GDDC

PATIENT
  Age: 60 Year
  Sex: Male

DRUGS (3)
  1. GLIBENCLAMIDE [Suspect]
     Dosage: DOSE: 20 DOSES X 5 MG
  2. METFORMIN [Suspect]
     Dosage: DOSE: 100 DOSE X 500 MG DOSE
  3. IBUPROFEN [Suspect]
     Dosage: DOSE: 20 DOSES X 400 MG DOSE

REACTIONS (11)
  - ABDOMINAL PAIN [None]
  - AGITATION [None]
  - ANURIA [None]
  - APNOEA [None]
  - DIALYSIS [None]
  - LACTIC ACIDOSIS [None]
  - METABOLIC ACIDOSIS [None]
  - OVERDOSE [None]
  - SEDATION [None]
  - VENTRICULAR FIBRILLATION [None]
  - VOMITING [None]
